FAERS Safety Report 24312658 (Version 1)
Quarter: 2024Q3

REPORT INFORMATION
  Report Type: Spontaneous
  Country: US (occurrence: US)
  Receive Date: 20240912
  Receipt Date: 20240912
  Transmission Date: 20241016
  Serious: Yes (Other)
  Sender: AMNEAL
  Company Number: US-AMNEAL-2024-AMRX-03307

PATIENT
  Age: 69 Year
  Sex: Male

DRUGS (1)
  1. BACLOFEN [Suspect]
     Active Substance: BACLOFEN
     Indication: Product used for unknown indication
     Dosage: 1452 MCG/DAY
     Route: 037

REACTIONS (3)
  - Impaired healing [Recovered/Resolved]
  - Implant site ulcer [Recovered/Resolved]
  - Implant site infection [Recovered/Resolved]

NARRATIVE: CASE EVENT DATE: 20240709
